FAERS Safety Report 8762356 (Version 1)
Quarter: 2012Q4

REPORT INFORMATION
  Report Type: 
  Country: GB (occurrence: GB)
  Receive Date: 20120830
  Receipt Date: 20120830
  Transmission Date: 20130627
  Serious: Yes (Other)
  Sender: FDA-Public Use
  Company Number: PHHY2012GB072955

PATIENT
  Age: 70 Year
  Sex: Female

DRUGS (1)
  1. ALENDRONIC ACID [Suspect]
     Indication: OSTEOPOROSIS
     Dosage: weekly
     Route: 048

REACTIONS (5)
  - Bronchiectasis [Recovered/Resolved]
  - Productive cough [Recovered/Resolved]
  - Choking [Recovered/Resolved]
  - Foreign body aspiration [Recovered/Resolved]
  - Streptococcus test positive [Recovered/Resolved]
